FAERS Safety Report 11721115 (Version 1)
Quarter: 2015Q4

REPORT INFORMATION
  Report Type: Report from Study
  Country: US (occurrence: US)
  Receive Date: 20151110
  Receipt Date: 20151110
  Transmission Date: 20160304
  Serious: No
  Sender: FDA-Public Use
  Company Number: GXBR2015US002330

PATIENT
  Sex: Female
  Weight: 31.75 kg

DRUGS (2)
  1. OMNITROPE [Suspect]
     Active Substance: SOMATROPIN
     Dosage: 1.6 MG, ON THE 7TH DAY
     Route: 065
     Dates: start: 201504
  2. OMNITROPE [Suspect]
     Active Substance: SOMATROPIN
     Indication: GROWTH HORMONE DEFICIENCY
     Dosage: 1.4 MG, FOR SIX DAYS A WEEK
     Route: 065
     Dates: start: 201504

REACTIONS (1)
  - Contusion [Not Recovered/Not Resolved]
